FAERS Safety Report 4889830-X (Version None)
Quarter: 2006Q1

REPORT INFORMATION
  Report Type: 
  Country: None (occurrence: None)
  Receive Date: 20060124
  Receipt Date: 20051005
  Transmission Date: 20060701
  Serious: Yes (Disabling, Other)
  Sender: FDA-Public Use
  Company Number: US-MERCK-0510USA05597

PATIENT
  Age: 47 Year
  Sex: Female
  Weight: 70 kg

DRUGS (4)
  1. VIOXX [Suspect]
     Indication: ARTHRITIS
     Route: 048
     Dates: start: 19990101, end: 20030101
  2. VIOXX [Suspect]
     Route: 048
     Dates: start: 19990101, end: 20030101
  3. VIOXX [Suspect]
     Indication: INTERVERTEBRAL DISC DEGENERATION
     Route: 048
     Dates: start: 19990101, end: 20030101
  4. VIOXX [Suspect]
     Route: 048
     Dates: start: 19990101, end: 20030101

REACTIONS (9)
  - BACK INJURY [None]
  - BLINDNESS UNILATERAL [None]
  - CARDIOVASCULAR DISORDER [None]
  - CHEST PAIN [None]
  - EYE HAEMORRHAGE [None]
  - HYPERTENSION [None]
  - LOWER LIMB FRACTURE [None]
  - NECK INJURY [None]
  - ROAD TRAFFIC ACCIDENT [None]
